FAERS Safety Report 4365777-2 (Version None)
Quarter: 2004Q2

REPORT INFORMATION
  Report Type: 
  Country: None (occurrence: None)
  Receive Date: 20040520
  Receipt Date: 20040512
  Transmission Date: 20050107
  Serious: No
  Sender: FDA-Public Use
  Company Number: 2004UW09925

PATIENT
  Age: 52 Year
  Sex: Female

DRUGS (4)
  1. CRESTOR [Suspect]
     Dosage: 10 MG DAILY PO
     Route: 048
  2. ELOCOM [Concomitant]
  3. NEXIUM [Concomitant]
  4. TIAZAC [Concomitant]

REACTIONS (10)
  - COLD SWEAT [None]
  - DECREASED APPETITE [None]
  - DIZZINESS [None]
  - DYSKINESIA [None]
  - FATIGUE [None]
  - NAUSEA [None]
  - PALPITATIONS [None]
  - RESTLESSNESS [None]
  - TREMOR [None]
  - VISION BLURRED [None]
